FAERS Safety Report 8641409 (Version 4)
Quarter: 2013Q4

REPORT INFORMATION
  Report Type: Report from Study
  Country: IE (occurrence: IE)
  Receive Date: 20120628
  Receipt Date: 20131219
  Transmission Date: 20140711
  Serious: Yes (Hospitalization)
  Sender: FDA-Public Use
  Company Number: IE-JNJFOC-20120610631

PATIENT
  Age: 54 Year
  Sex: Female
  Weight: 70.8 kg

DRUGS (2)
  1. REMICADE [Suspect]
     Indication: COLITIS ULCERATIVE
     Route: 042
     Dates: start: 20100618, end: 20120411
  2. COVERSYL [Concomitant]
     Indication: HYPERTENSION
     Route: 048
     Dates: start: 201102

REACTIONS (2)
  - Drug ineffective [Unknown]
  - Colitis ulcerative [Recovered/Resolved]
